FAERS Safety Report 8444940-5 (Version None)
Quarter: 2012Q2

REPORT INFORMATION
  Report Type: 
  Country: None (occurrence: None)
  Receive Date: 20120611
  Receipt Date: 20120526
  Transmission Date: 20120825
  Serious: Yes (Hospitalization, Other)
  Sender: FDA-Public Use
  Company Number: DSA_57706_2012

PATIENT
  Age: 79 Year
  Sex: Female

DRUGS (3)
  1. DILTIAZEM HCL [Suspect]
     Indication: PRODUCT USED FOR UNKNOWN INDICATION
     Dosage: (360 MG ONCE, NOT THE PRESCRIBED AMOUNT ORAL), (360 MG QD ORAL)
     Route: 048
  2. CLONIDINE [Suspect]
     Indication: PRODUCT USED FOR UNKNOWN INDICATION
     Dosage: (0.3 MG ONCE, NOT THE PRESCRIBED AMOUNT ORAL), (0.125 MG QD ORAL)
     Route: 048
  3. DIGOXIN [Suspect]
     Indication: PRODUCT USED FOR UNKNOWN INDICATION
     Dosage: (0.125 MG ONCE, NOT THE PRESCRIBED AMOUNT ORAL), (0.125 MG QD ORAL)
     Route: 048

REACTIONS (9)
  - ELECTROCARDIOGRAM ST-T CHANGE [None]
  - INCORRECT DOSE ADMINISTERED [None]
  - LEFT ATRIAL DILATATION [None]
  - ATRIOVENTRICULAR BLOCK SECOND DEGREE [None]
  - ARRHYTHMIA [None]
  - MALAISE [None]
  - PRESYNCOPE [None]
  - SINUS BRADYCARDIA [None]
  - ASTHENIA [None]
